FAERS Safety Report 7924029-1 (Version None)
Quarter: 2011Q4

REPORT INFORMATION
  Report Type: 
  Country: None (occurrence: None)
  Receive Date: 20111117
  Receipt Date: 20110214
  Transmission Date: 20120403
  Serious: No
  Sender: FDA-Public Use
  Company Number: US-AMGEN-USASP2011008743

PATIENT
  Sex: Male

DRUGS (1)
  1. ENBREL [Suspect]
     Indication: RHEUMATOID ARTHRITIS
     Dosage: 50 MG, QWK
     Dates: start: 20101201

REACTIONS (5)
  - DRY SKIN [None]
  - PRURITUS [None]
  - SKIN HYPERTROPHY [None]
  - ASTHMA [None]
  - RASH ERYTHEMATOUS [None]
